FAERS Safety Report 16388178 (Version 1)
Quarter: 2019Q2

REPORT INFORMATION
  Report Type: Spontaneous
  Country: DE (occurrence: DE)
  Receive Date: 20190604
  Receipt Date: 20190604
  Transmission Date: 20190711
  Serious: Yes (Other)
  Sender: FDA-Public Use
  Company Number: PHHY2019DE125772

PATIENT
  Age: 19 Year
  Sex: Male
  Weight: 70 kg

DRUGS (5)
  1. CLINDAMYCIN. [Concomitant]
     Active Substance: CLINDAMYCIN
     Indication: EPSTEIN-BARR VIRUS INFECTION
     Dosage: UNK (3X OFLOXACIN, CLINDAMYCIN, CEPHACLOR, 2X VALACICLOVIR , CEFUROXIM IM ZEITRAUM ZWISCHEN DEM 03.)
     Route: 048
  2. OFLOXACIN. [Suspect]
     Active Substance: OFLOXACIN
     Indication: EPSTEIN-BARR VIRUS INFECTION
     Dosage: UNK (3X OFLOXACIN, CLINDAMYCIN, CEPHACLOR, 2X VALACICLOVIR , CEFUROXIM IM ZEITRAUM ZWISCHEN DEM 03.)
     Route: 048
  3. CEFUROXIM [Concomitant]
     Active Substance: CEFUROXIME
     Indication: EPSTEIN-BARR VIRUS INFECTION
     Dosage: UNK (3X OFLOXACIN, CLINDAMYCIN, CEPHACLOR, 2X VALACICLOVIR , CEFUROXIM IM ZEITRAUM ZWISCHEN DEM 03.)
     Route: 048
  4. VALACICLOVIR [Concomitant]
     Active Substance: VALACYCLOVIR HYDROCHLORIDE
     Indication: EPSTEIN-BARR VIRUS INFECTION
     Dosage: UNK (3X OFLOXACIN, CLINDAMYCIN, CEPHACLOR, 2X VALACICLOVIR , CEFUROXIM IM ZEITRAUM ZWISCHEN DEM 03.)
     Route: 048
  5. CEFACLOR. [Concomitant]
     Active Substance: CEFACLOR
     Indication: EPSTEIN-BARR VIRUS INFECTION
     Dosage: 3X OFLOXACIN, CLINDAMYCIN, CEPHACLOR, 2X VALACICLOVIR , CEFUROXIM IM ZEITRAUM ZWISCHEN DEM 03.12.201
     Route: 048

REACTIONS (7)
  - Arthralgia [Unknown]
  - Sarcoidosis [Recovered/Resolved]
  - Pain in extremity [Unknown]
  - Tendon rupture [Unknown]
  - Fatigue [Recovering/Resolving]
  - Erythema nodosum [Recovered/Resolved]
  - Aphthous ulcer [Recovered/Resolved]

NARRATIVE: CASE EVENT DATE: 2013
